FAERS Safety Report 5266793-9 (Version None)
Quarter: 2007Q1

REPORT INFORMATION
  Report Type: 
  Country: None (occurrence: None)
  Receive Date: 20070312
  Receipt Date: 20070227
  Transmission Date: 20070707
  Serious: Yes (Hospitalization)
  Sender: FDA-Public Use
  Company Number: US019218

PATIENT
  Age: 34 Year
  Sex: Female
  Weight: 60.3 kg

DRUGS (1)
  1. PROVIGIL [Suspect]
     Indication: FATIGUE
     Dosage: 200 MG QD ORAL
     Route: 048
     Dates: start: 20070103, end: 20070105

REACTIONS (9)
  - CONVERSION DISORDER [None]
  - DISTURBANCE IN ATTENTION [None]
  - HEMIPARESIS [None]
  - HYPERTENSION [None]
  - PALPITATIONS [None]
  - SENSATION OF HEAVINESS [None]
  - SYNCOPE [None]
  - VERTIGO [None]
  - VISUAL DISTURBANCE [None]
